FAERS Safety Report 12013363 (Version 2)
Quarter: 2016Q2

REPORT INFORMATION
  Report Type: Report from Study
  Country: US (occurrence: US)
  Receive Date: 20160205
  Receipt Date: 20160421
  Transmission Date: 20160815
  Serious: Yes (Hospitalization)
  Sender: FDA-Public Use
  Company Number: US-ACTELION-A-US2016-130738

PATIENT
  Age: 72 Year
  Sex: Female

DRUGS (5)
  1. MACITENTAN [Suspect]
     Active Substance: MACITENTAN
     Indication: PULMONARY HYPERTENSION
     Dosage: 10 MG, QD
     Route: 048
     Dates: start: 20151023
  2. COUMADIN [Concomitant]
     Active Substance: WARFARIN SODIUM
  3. RIOCIGUAT [Concomitant]
     Active Substance: RIOCIGUAT
  4. TYVASO [Concomitant]
     Active Substance: TREPROSTINIL
  5. DILTIAZEM [Concomitant]
     Active Substance: DILTIAZEM

REACTIONS (6)
  - Acute chest syndrome [Unknown]
  - Cough [Unknown]
  - Loss of control of legs [Unknown]
  - Cardiac discomfort [Unknown]
  - Chest discomfort [Unknown]
  - Hypotension [Unknown]
